FAERS Safety Report 12683651 (Version 1)
Quarter: 2016Q3

REPORT INFORMATION
  Report Type: Report from Study
  Country: HU (occurrence: HU)
  Receive Date: 20160825
  Receipt Date: 20160825
  Transmission Date: 20161109
  Serious: Yes (Hospitalization, Other)
  Sender: FDA-Public Use
  Company Number: HU-JNJFOC-20160812543

PATIENT
  Age: 60 Year
  Sex: Male
  Weight: 67 kg

DRUGS (16)
  1. MILURIT [Concomitant]
     Active Substance: ALLOPURINOL
     Route: 065
  2. NITROMINT [Concomitant]
     Route: 065
  3. MABTHERA [Concomitant]
     Active Substance: RITUXIMAB
     Indication: ABDOMINAL NEOPLASM
     Route: 050
  4. CLEXANE [Concomitant]
     Active Substance: ENOXAPARIN SODIUM
     Route: 050
  5. NIVESTIM [Concomitant]
     Active Substance: FILGRASTIM
     Route: 050
  6. SUPRASTIN [Concomitant]
     Active Substance: CHLOROPYRAMINE HYDROCHLORIDE
     Route: 050
  7. TELVIRAN [Concomitant]
     Route: 065
  8. IMBRUVICA [Suspect]
     Active Substance: IBRUTINIB
     Indication: CHRONIC LYMPHOCYTIC LEUKAEMIA
     Route: 048
     Dates: start: 20150612
  9. ONDANSETRON [Concomitant]
     Active Substance: ONDANSETRON
     Route: 050
  10. BISOPROLOL [Concomitant]
     Active Substance: BISOPROLOL
     Route: 065
  11. PANALGORIN [Concomitant]
     Route: 065
  12. CERUCAL [Concomitant]
     Active Substance: METOCLOPRAMIDE HYDROCHLORIDE
     Route: 050
  13. SALSOL [Concomitant]
     Active Substance: ALBUTEROL SULFATE
     Route: 065
  14. SOLU-MEDROL [Concomitant]
     Active Substance: METHYLPREDNISOLONE SODIUM SUCCINATE
     Route: 050
  15. BENDAMUSTINE [Concomitant]
     Active Substance: BENDAMUSTINE
     Indication: ABDOMINAL NEOPLASM
     Route: 050
  16. NEULASTA [Concomitant]
     Active Substance: PEGFILGRASTIM
     Route: 050

REACTIONS (2)
  - Bronchitis [Not Recovered/Not Resolved]
  - Immunochemotherapy [Recovering/Resolving]

NARRATIVE: CASE EVENT DATE: 20160210
